FAERS Safety Report 6213561-7 (Version None)
Quarter: 2009Q2

REPORT INFORMATION
  Report Type: 
  Country: None (occurrence: None)
  Receive Date: 20090601
  Receipt Date: 20090520
  Transmission Date: 20091009
  Serious: Yes (Hospitalization)
  Sender: FDA-Public Use
  Company Number: GXKR2009KR06084

PATIENT
  Age: 78 Year
  Sex: Female

DRUGS (1)
  1. METRONIDAZOLE [Suspect]
     Indication: LUNG ABSCESS
     Dosage: 500 MG, QID

REACTIONS (2)
  - ENCEPHALOPATHY [None]
  - GAIT DISTURBANCE [None]
